FAERS Safety Report 6086643-0 (Version None)
Quarter: 2009Q1

REPORT INFORMATION
  Report Type: 
  Country: None (occurrence: None)
  Receive Date: 20090223
  Receipt Date: 20090212
  Transmission Date: 20090719
  Serious: Yes (Hospitalization, Other)
  Sender: FDA-Public Use
  Company Number: US-AMGEN-QUU333756

PATIENT
  Sex: Female

DRUGS (2)
  1. ENBREL [Suspect]
     Indication: RHEUMATOID ARTHRITIS
  2. METHOTREXATE [Concomitant]
     Route: 058

REACTIONS (8)
  - AMNESIA [None]
  - BLINDNESS [None]
  - CARDIOVASCULAR INSUFFICIENCY [None]
  - HIP ARTHROPLASTY [None]
  - JOINT RANGE OF MOTION DECREASED [None]
  - OSTEOMALACIA [None]
  - OSTEOMYELITIS [None]
  - SEPSIS [None]
